FAERS Safety Report 4295977-1 (Version None)
Quarter: 2004Q1

REPORT INFORMATION
  Report Type: 
  Country: None (occurrence: None)
  Receive Date: 20040212
  Receipt Date: 20040203
  Transmission Date: 20041129
  Serious: Yes (Hospitalization)
  Sender: FDA-Public Use
  Company Number: PERI00204000320

PATIENT
  Age: 84 Year
  Sex: Male

DRUGS (5)
  1. COVERSYL (PERINDOPRIL) [Suspect]
     Indication: ILL-DEFINED DISORDER
     Dosage: 1 DF QD PO
     Route: 048
     Dates: start: 20011127, end: 20011127
  2. TIMOLOL MALEATE [Concomitant]
  3. OMIX (TAMSULOSIN HYDROCHLORIDE) [Concomitant]
  4. KARDEGIC (ACETYLSALICYLATE LYSINE) [Concomitant]
  5. PIRACETAM (PIRACETAM) [Concomitant]

REACTIONS (2)
  - DERMATITIS PSORIASIFORM [None]
  - DRUG TOLERANCE DECREASED [None]
